FAERS Safety Report 4314939-9 (Version None)
Quarter: 2004Q1

REPORT INFORMATION
  Report Type: 
  Country: None (occurrence: None)
  Receive Date: 20040310
  Receipt Date: 20040310
  Transmission Date: 20041129
  Serious: No
  Sender: FDA-Public Use
  Company Number: None

PATIENT
  Sex: Male
  Weight: 50.9 kg

DRUGS (1)
  1. LORAZEPAM [Suspect]
     Dosage: 2 MG X 1 IV
     Route: 042

REACTIONS (2)
  - OXYGEN SATURATION DECREASED [None]
  - RESPIRATORY RATE DECREASED [None]
